FAERS Safety Report 5304305-1 (Version None)
Quarter: 2007Q2

REPORT INFORMATION
  Report Type: 
  Country: None (occurrence: None)
  Receive Date: 20070423
  Receipt Date: 20070411
  Transmission Date: 20071010
  Serious: Yes (Hospitalization)
  Sender: FDA-Public Use
  Company Number: FR-BAYER-200710272BFR

PATIENT
  Age: 68 Year
  Sex: Male
  Weight: 71 kg

DRUGS (8)
  1. SORAFENIB [Suspect]
     Indication: PROSTATE CANCER
     Dosage: TOTAL DAILY DOSE: 400 MG  UNIT DOSE: 200 MG
     Route: 048
     Dates: start: 20070329, end: 20070401
  2. SORAFENIB [Suspect]
     Route: 048
  3. TAXOTERE [Suspect]
     Indication: PROSTATE CANCER
     Route: 042
     Dates: start: 20070327, end: 20070327
  4. CELEBREX [Concomitant]
     Indication: PAIN
     Route: 048
     Dates: start: 20070101, end: 20070330
  5. NORMACOL [Concomitant]
     Indication: CONSTIPATION
     Route: 048
     Dates: start: 20070402, end: 20070402
  6. TAZOCILLINE [Concomitant]
     Indication: PROPHYLAXIS
     Route: 042
     Dates: start: 20070402, end: 20070405
  7. CIPROFLOXACIN HCL [Concomitant]
     Indication: PROPHYLAXIS
     Route: 042
     Dates: start: 20070402, end: 20070405
  8. TRIFLUCAN [Concomitant]
     Indication: PROPHYLAXIS
     Route: 048
     Dates: start: 20070402, end: 20070404

REACTIONS (2)
  - FEBRILE NEUTROPENIA [None]
  - HYPOALBUMINAEMIA [None]
